FAERS Safety Report 5756095-6 (Version None)
Quarter: 2008Q2

REPORT INFORMATION
  Report Type: 
  Country: None (occurrence: None)
  Receive Date: 20080602
  Receipt Date: 20080522
  Transmission Date: 20081010
  Serious: Yes (Hospitalization)
  Sender: FDA-Public Use
  Company Number: GB-BOEHRINGER INGELHEIM GMBH, GERMANY-2008-BP-08508YA

PATIENT
  Sex: Male

DRUGS (1)
  1. TAMSULOSIN HCL [Suspect]
     Indication: DRUG USE FOR UNKNOWN INDICATION
     Route: 048
     Dates: start: 20080517

REACTIONS (3)
  - CIRCULATORY COLLAPSE [None]
  - SYNCOPE [None]
  - URINARY RETENTION [None]
